FAERS Safety Report 17486756 (Version 1)
Quarter: 2020Q1

REPORT INFORMATION
  Report Type: Report from Study
  Country: None (occurrence: CA)
  Receive Date: 20200303
  Receipt Date: 20200303
  Transmission Date: 20200409
  Serious: Yes (Other)
  Sender: FDA-Public Use
  Company Number: CA-ABBVIE-20K-028-3301933-00

PATIENT
  Age: 69 Year
  Sex: Male

DRUGS (3)
  1. IMBRUVICA [Suspect]
     Active Substance: IBRUTINIB
     Indication: CHRONIC LYMPHOCYTIC LEUKAEMIA
     Dosage: STRENGTH = 140 MG
     Route: 048
     Dates: start: 20170313
  2. IMBRUVICA [Suspect]
     Active Substance: IBRUTINIB
     Dosage: STRENGTH = 140 MG
     Route: 048
  3. IMBRUVICA [Suspect]
     Active Substance: IBRUTINIB
     Dosage: STRENGTH = 140 MG
     Route: 048

REACTIONS (3)
  - Incorrect dose administered [Unknown]
  - Off label use [Unknown]
  - Blood blister [Unknown]

NARRATIVE: CASE EVENT DATE: 20170313
